FAERS Safety Report 19381929 (Version 1)
Quarter: 2021Q2

REPORT INFORMATION
  Report Type: Spontaneous
  Country: US (occurrence: US)
  Receive Date: 20210607
  Receipt Date: 20210607
  Transmission Date: 20210717
  Serious: No
  Sender: FDA-Public Use
  Company Number: US-PFIZER INC-2021520272

PATIENT
  Age: 58 Year
  Sex: Female

DRUGS (2)
  1. KETOROLAC TROMETHAMINE. [Suspect]
     Active Substance: KETOROLAC TROMETHAMINE
     Dosage: UNK
  2. ADVIL [Interacting]
     Active Substance: IBUPROFEN
     Dosage: UNK

REACTIONS (3)
  - Drug interaction [Unknown]
  - Cross sensitivity reaction [Unknown]
  - Drug hypersensitivity [Unknown]
